FAERS Safety Report 19964617 (Version 1)
Quarter: 2021Q4

REPORT INFORMATION
  Report Type: Spontaneous
  Country: US (occurrence: US)
  Receive Date: 20211018
  Receipt Date: 20211018
  Transmission Date: 20220303
  Serious: Yes (Hospitalization)
  Sender: FDA-Public Use
  Company Number: US-ALVOGEN-2021-ALVOGEN-117659

PATIENT
  Age: 23 Year
  Sex: Male

DRUGS (3)
  1. PYRIMETHAMINE [Suspect]
     Active Substance: PYRIMETHAMINE
     Indication: Systolic dysfunction
  2. SULFADIAZINE [Suspect]
     Active Substance: SULFADIAZINE
     Indication: Systolic dysfunction
  3. LEUCOVORIN [Suspect]
     Active Substance: LEUCOVORIN
     Indication: Systolic dysfunction

REACTIONS (2)
  - Fatigue [Recovering/Resolving]
  - Gastrointestinal disorder [Recovering/Resolving]
